FAERS Safety Report 7693509-9 (Version None)
Quarter: 2011Q3

REPORT INFORMATION
  Report Type: 
  Country: None (occurrence: None)
  Receive Date: 20110819
  Receipt Date: 20110819
  Transmission Date: 20111222
  Serious: Yes (Life-Threatening)
  Sender: FDA-Public Use
  Company Number: None

PATIENT
  Age: 30 Year
  Sex: Male
  Weight: 86.182 kg

DRUGS (1)
  1. CYMBALTA [Suspect]
     Indication: DEPRESSION
     Dosage: 60 MG
     Route: 048
     Dates: start: 20100625, end: 20110615

REACTIONS (4)
  - DYSPNOEA [None]
  - PANIC ATTACK [None]
  - DRUG WITHDRAWAL SYNDROME [None]
  - CHEST DISCOMFORT [None]
